FAERS Safety Report 8933025 (Version 1)
Quarter: 2012Q4

REPORT INFORMATION
  Report Type: 
  Country: IT (occurrence: IT)
  Receive Date: 20121128
  Receipt Date: 20121128
  Transmission Date: 20130627
  Serious: Yes (Hospitalization)
  Sender: FDA-Public Use
  Company Number: IT-TEVA-371527ISR

PATIENT
  Age: 75 Year
  Sex: Female

DRUGS (2)
  1. DILTIAZEM [Suspect]
     Dosage: 300 Milligram Daily;
     Route: 048
     Dates: start: 20110910, end: 20120909
  2. BISOPROLOL FUMARATE [Interacting]
     Dosage: 2.5 Milligram Daily;
     Route: 048
     Dates: start: 20110910, end: 20120909

REACTIONS (2)
  - Bradycardia [Recovering/Resolving]
  - Drug interaction [Unknown]
